FAERS Safety Report 9363615 (Version 3)
Quarter: 2013Q4

REPORT INFORMATION
  Report Type: Spontaneous
  Country: GB (occurrence: GB)
  Receive Date: 20130624
  Receipt Date: 20131007
  Transmission Date: 20140711
  Serious: Yes (Death, Other)
  Sender: FDA-Public Use
  Company Number: PHFR2010GB05164

PATIENT
  Age: 49 Year
  Sex: Male

DRUGS (1)
  1. CLOZARIL [Suspect]
     Indication: SCHIZOPHRENIA
     Dosage: UNK
     Route: 048
     Dates: start: 20010701

REACTIONS (7)
  - Cardiac failure acute [Fatal]
  - Myocardial ischaemia [Fatal]
  - Myocardial infarction [Fatal]
  - Circulatory collapse [Unknown]
  - Malaise [Unknown]
  - Anaemia [Recovering/Resolving]
  - Renal impairment [Unknown]
